FAERS Safety Report 5501201-1 (Version None)
Quarter: 2007Q4

REPORT INFORMATION
  Report Type: 
  Country: None (occurrence: None)
  Receive Date: 20071029
  Receipt Date: 20071017
  Transmission Date: 20080405
  Serious: Yes (Other)
  Sender: FDA-Public Use
  Company Number: GB-PFIZER INC-2007085300

PATIENT
  Sex: Female
  Weight: 62 kg

DRUGS (1)
  1. CHAMPIX [Suspect]
     Route: 048
     Dates: start: 20070926, end: 20071009

REACTIONS (5)
  - AGITATION [None]
  - ANGER [None]
  - GASTRIC DISORDER [None]
  - MOOD ALTERED [None]
  - NAUSEA [None]
